FAERS Safety Report 5358736-4 (Version None)
Quarter: 2007Q2

REPORT INFORMATION
  Report Type: 
  Country: None (occurrence: None)
  Receive Date: 20070615
  Receipt Date: 20070606
  Transmission Date: 20071010
  Serious: Yes (Other)
  Sender: FDA-Public Use
  Company Number: KR-ROCHE-501021

PATIENT
  Age: 68 Year
  Sex: Male

DRUGS (8)
  1. TICLOPIDINE HCL [Suspect]
     Indication: THROMBOSIS PROPHYLAXIS
     Route: 048
     Dates: end: 20070510
  2. PLAVIX [Suspect]
     Indication: THROMBOSIS PROPHYLAXIS
     Route: 048
     Dates: start: 20070511, end: 20070513
  3. ACETYLSALICYLIC ACID SRT [Suspect]
     Indication: THROMBOSIS PROPHYLAXIS
     Route: 048
     Dates: end: 20070510
  4. LYSINE ASPIRIN [Concomitant]
     Dates: start: 20070511, end: 20070511
  5. RANITIDINE [Concomitant]
     Dates: start: 20070511
  6. NAPROXEN [Concomitant]
     Dates: start: 20070511
  7. TRAZODONE HCL [Concomitant]
     Indication: DEPRESSION
     Route: 048
  8. ZOLPIDEM [Concomitant]
     Indication: INSOMNIA
     Route: 048

REACTIONS (3)
  - EYE HAEMORRHAGE [None]
  - RETINAL DETACHMENT [None]
  - VISUAL ACUITY REDUCED [None]
